FAERS Safety Report 7448566-1 (Version None)
Quarter: 2011Q2

REPORT INFORMATION
  Report Type: 
  Country: None (occurrence: None)
  Receive Date: 20110429
  Receipt Date: 20100601
  Transmission Date: 20111010
  Serious: No
  Sender: FDA-Public Use
  Company Number: US-ASTRAZENECA-2010SE25138

PATIENT
  Age: 21389 Day
  Sex: Female
  Weight: 81.6 kg

DRUGS (1)
  1. NEXIUM [Suspect]
     Route: 048
     Dates: start: 20100522

REACTIONS (6)
  - EYELIDS PRURITUS [None]
  - URTICARIA [None]
  - GASTROINTESTINAL PAIN [None]
  - DRY MOUTH [None]
  - NAUSEA [None]
  - RASH [None]
